FAERS Safety Report 4445815-9 (Version None)
Quarter: 2004Q3

REPORT INFORMATION
  Report Type: 
  Country: None (occurrence: None)
  Receive Date: 20040903
  Receipt Date: 20040824
  Transmission Date: 20050211
  Serious: Yes (Life-Threatening)
  Sender: FDA-Public Use
  Company Number: 2004-BP-07199AU

PATIENT
  Age: 89 Year
  Sex: Female

DRUGS (1)
  1. MOBIC [Suspect]
     Dosage: PO
     Route: 048
     Dates: start: 20030925, end: 20031005

REACTIONS (1)
  - UPPER GASTROINTESTINAL HAEMORRHAGE [None]
